FAERS Safety Report 8137690-6 (Version None)
Quarter: 2012Q1

REPORT INFORMATION
  Report Type: 
  Country: None (occurrence: None)
  Receive Date: 20120213
  Receipt Date: 20120203
  Transmission Date: 20120608
  Serious: Yes (Congenital Anomaly)
  Sender: FDA-Public Use
  Company Number: 1000028143

PATIENT
  Sex: Male

DRUGS (1)
  1. LEXAPRO [Suspect]
     Dosage: TRANSPLACENTAL
     Route: 064
     Dates: end: 20090123

REACTIONS (3)
  - VENTRICULAR SEPTAL DEFECT [None]
  - DOUBLE OUTLET RIGHT VENTRICLE [None]
  - MATERNAL DRUGS AFFECTING FOETUS [None]
